FAERS Safety Report 17697703 (Version 1)
Quarter: 2020Q2

REPORT INFORMATION
  Report Type: Spontaneous
  Country: US (occurrence: US)
  Receive Date: 20200422
  Receipt Date: 20200422
  Transmission Date: 20200714
  Serious: No
  Sender: FDA-Public Use
  Company Number: None

PATIENT
  Age: 38 Year
  Sex: Female
  Weight: 57.6 kg

DRUGS (8)
  1. IRON PLUS VITAMIN C [Concomitant]
  2. ODACTRA [Suspect]
     Active Substance: DERMATOPHAGOIDES FARINAE\DERMATOPHAGOIDES PTERONYSSINUS
     Indication: MITE ALLERGY
     Dosage: ?          OTHER STRENGTH:12 SQ-HDM;QUANTITY:1 TABLET(S);?
     Route: 060
     Dates: start: 20200406, end: 20200413
  3. VITAMIN B6/B12 [Concomitant]
  4. ADVIL [Concomitant]
     Active Substance: IBUPROFEN
  5. MULTIVITAMIN [Concomitant]
     Active Substance: VITAMINS
  6. SERTRALINE [Concomitant]
     Active Substance: SERTRALINE HYDROCHLORIDE
  7. SINGULAIR [Concomitant]
     Active Substance: MONTELUKAST SODIUM
  8. VITAMIN D [Concomitant]
     Active Substance: VITAMIN D NOS

REACTIONS (5)
  - Headache [None]
  - Abdominal pain upper [None]
  - Nausea [None]
  - Ulcer [None]
  - Discomfort [None]

NARRATIVE: CASE EVENT DATE: 20200413
